FAERS Safety Report 20927465 (Version 2)
Quarter: 2023Q2

REPORT INFORMATION
  Report Type: Spontaneous
  Country: JP (occurrence: JP)
  Receive Date: 20220607
  Receipt Date: 20230428
  Transmission Date: 20230722
  Serious: Yes (Death, Life-Threatening, Other)
  Sender: FDA-Public Use
  Company Number: JP-JAZZ-2022-JP-018808

PATIENT
  Age: 1 Year
  Sex: Male
  Weight: 13.6 kg

DRUGS (2)
  1. DEFITELIO [Suspect]
     Active Substance: DEFIBROTIDE SODIUM
     Indication: Venoocclusive liver disease
     Dosage: 25 MICROGRAM/KILOGRAM/24 HOURS
     Route: 042
     Dates: start: 20220216, end: 20220307
  2. NEUART [Concomitant]
     Active Substance: ANTITHROMBIN III HUMAN
     Indication: Product used for unknown indication
     Dosage: UNK
     Dates: start: 20220216, end: 20220220

REACTIONS (2)
  - Acute lymphocytic leukaemia [Fatal]
  - Hypotension [Recovered/Resolved]

NARRATIVE: CASE EVENT DATE: 20220216
